FAERS Safety Report 15253852 (Version 1)
Quarter: 2018Q3

REPORT INFORMATION
  Report Type: Spontaneous
  Country: US (occurrence: US)
  Receive Date: 20180808
  Receipt Date: 20180808
  Transmission Date: 20181010
  Serious: No
  Sender: FDA-Public Use
  Company Number: US-B.I. PHARMACEUTICALS,INC./RIDGEFIELD-2018-BI-038837

PATIENT
  Age: 69 Year
  Sex: Female

DRUGS (1)
  1. PRADAXA [Suspect]
     Active Substance: DABIGATRAN ETEXILATE MESYLATE
     Indication: PRODUCT USED FOR UNKNOWN INDICATION
     Dosage: ADMINISTRATION CORRECT? YES ?ACTION(S) TAKEN WITH PRODUCT: DOSE NOT CHANGED
     Route: 048
     Dates: start: 20180615

REACTIONS (19)
  - Contusion [Unknown]
  - Skin disorder [Unknown]
  - Vascular pain [Unknown]
  - Dizziness [Unknown]
  - Pruritus [Unknown]
  - Lethargy [Unknown]
  - Pain in extremity [Unknown]
  - Anxiety [Unknown]
  - Diarrhoea [Unknown]
  - Constipation [Unknown]
  - Rhinalgia [Unknown]
  - Dry mouth [Unknown]
  - Asthenia [Unknown]
  - Headache [Unknown]
  - Arthralgia [Unknown]
  - Disorientation [Unknown]
  - Mood altered [Unknown]
  - Vision blurred [Unknown]
  - Musculoskeletal chest pain [Unknown]

NARRATIVE: CASE EVENT DATE: 20180712
